FAERS Safety Report 5048989-4 (Version None)
Quarter: 2006Q3

REPORT INFORMATION
  Report Type: 
  Country: None (occurrence: None)
  Receive Date: 20060712
  Receipt Date: 20051107
  Transmission Date: 20061208
  Serious: No
  Sender: FDA-Public Use
  Company Number: US-GLAXOSMITHKLINE-A0581462A

PATIENT
  Age: 41 Year
  Sex: Female
  Weight: 61.4 kg

DRUGS (1)
  1. IMITREX [Suspect]
     Indication: MIGRAINE
     Route: 048
     Dates: start: 20051101, end: 20051101

REACTIONS (1)
  - BACK PAIN [None]
